FAERS Safety Report 4582535-4 (Version None)
Quarter: 2005Q1

REPORT INFORMATION
  Report Type: 
  Country: None (occurrence: None)
  Receive Date: 20050211
  Receipt Date: 20050211
  Transmission Date: 20050727
  Serious: No
  Sender: FDA-Public Use
  Company Number: None

PATIENT
  Age: 48 Year
  Sex: Female
  Weight: 99.7913 kg

DRUGS (1)
  1. VANCOMYCIN [Suspect]
     Indication: ARTHRITIS INFECTIVE
     Dosage: 1200MG  Q12
     Dates: start: 20050122, end: 20050131

REACTIONS (3)
  - BODY TEMPERATURE INCREASED [None]
  - HEADACHE [None]
  - RASH ERYTHEMATOUS [None]
